FAERS Safety Report 21976960 (Version 1)
Quarter: 2023Q1

REPORT INFORMATION
  Report Type: Other
  Country: DE (occurrence: DE)
  Receive Date: 20230210
  Receipt Date: 20230210
  Transmission Date: 20230418
  Serious: Yes (Other)
  Sender: FDA-Public Use
  Company Number: DE-MACLEODS PHARMA UK LTD-MAC2023039690

PATIENT

DRUGS (2)
  1. ESCITALOPRAM [Suspect]
     Active Substance: ESCITALOPRAM OXALATE
     Indication: Product used for unknown indication
     Dosage: 10 MILLIGRAM, QD, 1ST TRIMESTER (0. - 41.2. GESTATIONAL WEEK)
     Route: 064
     Dates: start: 20201027, end: 20210812
  2. PANTOPRAZOLE SODIUM [Suspect]
     Active Substance: PANTOPRAZOLE SODIUM
     Indication: Product used for unknown indication
     Dosage: 20 MILLIGRAM, QD, EXPOSURE AT 3RD TRIMESTER (33. - 41.2. GESTATIONAL WEEK)
     Route: 064

REACTIONS (4)
  - Bradycardia neonatal [Recovered/Resolved]
  - Respiratory disorder neonatal [Recovered/Resolved]
  - Atrial septal defect [Unknown]
  - Foetal exposure during pregnancy [Unknown]
